FAERS Safety Report 10686514 (Version 1)
Quarter: 2015Q1

REPORT INFORMATION
  Report Type: Spontaneous
  Country: JP (occurrence: JP)
  Receive Date: 20150101
  Receipt Date: 20150101
  Transmission Date: 20150720
  Serious: Yes (Hospitalization, Other)
  Sender: FDA-Public Use
  Company Number: JP-ROCHE-1516290

PATIENT
  Age: 70 Year
  Sex: Female

DRUGS (3)
  1. SOVRIAD [Suspect]
     Active Substance: SIMEPREVIR
     Indication: CHRONIC HEPATITIS C
     Route: 048
     Dates: start: 201410, end: 201412
  2. PEGINTRON [Suspect]
     Active Substance: PEGINTERFERON ALFA-2B
     Indication: CHRONIC HEPATITIS C
     Route: 058
     Dates: start: 201410, end: 201412
  3. COPEGUS [Suspect]
     Active Substance: RIBAVIRIN
     Indication: CHRONIC HEPATITIS C
     Route: 048
     Dates: start: 201410, end: 201412

REACTIONS (2)
  - Renal disorder [Unknown]
  - Transaminases increased [Recovering/Resolving]

NARRATIVE: CASE EVENT DATE: 201411
